FAERS Safety Report 15515922 (Version 4)
Quarter: 2018Q4

REPORT INFORMATION
  Report Type: Report from Study
  Country: None (occurrence: US)
  Receive Date: 20181017
  Receipt Date: 20181217
  Transmission Date: 20190205
  Serious: Yes (Hospitalization, Other)
  Sender: FDA-Public Use
  Company Number: US-ABBVIE-18K-163-2521537-00

PATIENT
  Age: 83 Year
  Sex: Female
  Weight: 86.26 kg

DRUGS (2)
  1. HUMIRA [Suspect]
     Active Substance: ADALIMUMAB
     Route: 058
  2. HUMIRA [Suspect]
     Active Substance: ADALIMUMAB
     Indication: RHEUMATOID ARTHRITIS
     Route: 058
     Dates: start: 20171206

REACTIONS (8)
  - Arthritis [Unknown]
  - Gastric disorder [Unknown]
  - Cystitis [Recovered/Resolved]
  - Chest pain [Recovered/Resolved]
  - Atrial flutter [Recovered/Resolved]
  - Complication associated with device [Recovering/Resolving]
  - Heart rate decreased [Recovered/Resolved]
  - Asthenia [Unknown]

NARRATIVE: CASE EVENT DATE: 2018
